FAERS Safety Report 13557188 (Version 1)
Quarter: 2017Q2

REPORT INFORMATION
  Report Type: Spontaneous
  Country: US (occurrence: US)
  Receive Date: 20170518
  Receipt Date: 20170518
  Transmission Date: 20170830
  Serious: Yes (Other)
  Sender: FDA-Public Use
  Company Number: US-GLENMARK PHARMACEUTICALS-2017GMK027489

PATIENT
  Age: 33 Year
  Sex: Female

DRUGS (3)
  1. BETAMETHASONE DIPROPIONATE. [Suspect]
     Active Substance: BETAMETHASONE DIPROPIONATE
     Indication: DERMATITIS BULLOUS
     Dosage: UNK
     Route: 061
  2. PREDNISONE. [Suspect]
     Active Substance: PREDNISONE
     Indication: DERMATITIS BULLOUS
     Dosage: HIGH DOSE
     Route: 065
  3. DAPSONE. [Suspect]
     Active Substance: DAPSONE
     Indication: DERMATITIS BULLOUS
     Dosage: UNK
     Route: 065

REACTIONS (2)
  - Oesophageal ulcer [Unknown]
  - Mouth ulceration [Unknown]
